FAERS Safety Report 9238031 (Version 2)
Quarter: 2014Q1

REPORT INFORMATION
  Report Type: Spontaneous
  Country: US (occurrence: None)
  Receive Date: 20121106
  Receipt Date: 20130305
  Transmission Date: 20141002
  Serious: Yes (Other)
  Sender: FDA-Public Use
  Company Number: 1000039018

PATIENT
  Age: 69 Year
  Sex: Male
  Weight: 94 kg

DRUGS (8)
  1. DALIRESP [Suspect]
     Indication: CHRONIC OBSTRUCTIVE PULMONARY DISEASE
     Route: 048
     Dates: start: 20120806, end: 20120906
  2. TIOTROPIUM [Concomitant]
  3. SYMBICORT (BUDESONIDE W/ FORMOTEROL FUMARATE) [Concomitant]
  4. ALBUTEROL [Concomitant]
  5. DICYCLOMINE [Concomitant]
  6. ESOMEPRAZOLE [Concomitant]
  7. ZOLPIDEM [Concomitant]
  8. SERTRALINE [Concomitant]

REACTIONS (1)
  - Suicidal ideation [None]
